FAERS Safety Report 10945854 (Version 1)
Quarter: 2015Q1

REPORT INFORMATION
  Report Type: Spontaneous
  Country: US (occurrence: US)
  Receive Date: 20150323
  Receipt Date: 20150323
  Transmission Date: 20150721
  Serious: Yes (Other)
  Sender: FDA-Public Use
  Company Number: US-GLAXOSMITHKLINE-US2015GSK019026

PATIENT
  Sex: Female

DRUGS (2)
  1. FROVATRIPTAN [Suspect]
     Active Substance: FROVATRIPTAN
     Indication: MIGRAINE
     Dosage: UNK, U
     Route: 065
     Dates: start: 2002, end: 2006
  2. IMITREX [Suspect]
     Active Substance: SUMATRIPTAN\SUMATRIPTAN SUCCINATE
     Indication: MIGRAINE
     Dosage: UNK, U
     Route: 065
     Dates: start: 2004

REACTIONS (4)
  - Drug ineffective [Unknown]
  - Multiple sclerosis [Not Recovered/Not Resolved]
  - Drug ineffective for unapproved indication [Unknown]
  - Migraine [Unknown]

NARRATIVE: CASE EVENT DATE: 2004
